FAERS Safety Report 5626007-4 (Version None)
Quarter: 2008Q1

REPORT INFORMATION
  Report Type: 
  Country: None (occurrence: None)
  Receive Date: 20080214
  Receipt Date: 20080206
  Transmission Date: 20080703
  Serious: Yes (Hospitalization)
  Sender: FDA-Public Use
  Company Number: PHHY2008JP01409

PATIENT
  Age: 58 Year
  Sex: Female

DRUGS (2)
  1. VALSARTAN [Suspect]
  2. AMLODIPINE BESYLATE [Concomitant]

REACTIONS (4)
  - CEREBRAL INFARCTION [None]
  - DISSEMINATED INTRAVASCULAR COAGULATION [None]
  - SEPSIS [None]
  - TOXIC EPIDERMAL NECROLYSIS [None]
